FAERS Safety Report 4721212-3 (Version None)
Quarter: 2005Q3

REPORT INFORMATION
  Report Type: 
  Country: None (occurrence: None)
  Receive Date: 20050722
  Receipt Date: 20050623
  Transmission Date: 20060218
  Serious: Yes (Hospitalization)
  Sender: FDA-Public Use
  Company Number: 2005SE03680

PATIENT
  Age: 25247 Day
  Sex: Female

DRUGS (8)
  1. BLOPRESS TABLETS 4 [Suspect]
     Indication: HYPERTENSION
     Route: 048
     Dates: start: 20050524, end: 20050607
  2. MEXIRATE [Suspect]
     Indication: PALPITATIONS
     Route: 048
     Dates: start: 20041026, end: 20041222
  3. MEXIRATE [Suspect]
     Route: 048
     Dates: start: 20050607, end: 20050607
  4. PENFILL R [Concomitant]
     Route: 058
     Dates: start: 20040801
  5. EMPYNACE PD [Concomitant]
     Indication: NASOPHARYNGITIS
     Route: 048
     Dates: start: 20050606, end: 20050607
  6. TOWATHIEM (NON-PYRINE PREPARATION FOR COLD SYNDROME 4) [Concomitant]
     Indication: NASOPHARYNGITIS
     Route: 048
     Dates: start: 20050606, end: 20050607
  7. SISAAL [Concomitant]
     Indication: NASOPHARYNGITIS
     Route: 048
     Dates: start: 20050606, end: 20050607
  8. TOWARAT L [Concomitant]
     Indication: HYPERTENSION
     Route: 048
     Dates: start: 20050518, end: 20050606

REACTIONS (3)
  - BLOOD PRESSURE DECREASED [None]
  - CHRONIC SINUSITIS [None]
  - PNEUMONIA [None]
